FAERS Safety Report 9520000 (Version 1)
Quarter: 2013Q1

REPORT INFORMATION
  Report Type: Spontaneous
  Country: US (occurrence: None)
  Receive Date: 20130305
  Receipt Date: 20130305
  Transmission Date: 20140127
  Serious: Yes (Hospitalization)
  Sender: FDA-Public Use
  Company Number: 163-21880-12013085

PATIENT
  Age: 83 Year
  Sex: Female

DRUGS (1)
  1. REVLIMID [Suspect]
     Indication: PLASMA CELL MYELOMA
     Dosage: 10 MG, 1 CAP ON MONDAY AND 1 CAP ON THURSDAY, PO
     Route: 048
     Dates: start: 20110825, end: 20120116

REACTIONS (4)
  - Dehydration [None]
  - Local swelling [None]
  - Pain in extremity [None]
  - Fatigue [None]
